FAERS Safety Report 13671624 (Version 1)
Quarter: 2017Q2

REPORT INFORMATION
  Report Type: Spontaneous
  Country: US (occurrence: US)
  Receive Date: 20170620
  Receipt Date: 20170620
  Transmission Date: 20170830
  Serious: Yes (Other)
  Sender: FDA-Public Use
  Company Number: US-ROCHE-1365229

PATIENT
  Age: 79 Year
  Sex: Female

DRUGS (1)
  1. XELODA [Suspect]
     Active Substance: CAPECITABINE
     Indication: BREAST CANCER
     Route: 048
     Dates: start: 20140221, end: 20140306

REACTIONS (4)
  - Stomatitis [Recovered/Resolved]
  - Candida infection [Not Recovered/Not Resolved]
  - Epistaxis [Recovered/Resolved]
  - Tongue ulceration [Recovered/Resolved]

NARRATIVE: CASE EVENT DATE: 20140228
